FAERS Safety Report 17193379 (Version 1)
Quarter: 2019Q4

REPORT INFORMATION
  Report Type: Spontaneous
  Country: GR (occurrence: GR)
  Receive Date: 20191223
  Receipt Date: 20191223
  Transmission Date: 20200122
  Serious: Yes (Other)
  Sender: FDA-Public Use
  Company Number: GR-JNJFOC-20191223638

PATIENT
  Age: 55 Year
  Sex: Male

DRUGS (2)
  1. AZATHIOPRINE. [Suspect]
     Active Substance: AZATHIOPRINE
     Indication: CROHN^S DISEASE
     Route: 065
     Dates: start: 201601, end: 201703
  2. INFLIXIMAB, RECOMBINANT [Suspect]
     Active Substance: INFLIXIMAB
     Indication: CROHN^S DISEASE
     Route: 042
     Dates: start: 201610

REACTIONS (4)
  - Hepatocellular carcinoma [Unknown]
  - Hepatic enzyme increased [Unknown]
  - Disease progression [Unknown]
  - Focal nodular hyperplasia [Unknown]

NARRATIVE: CASE EVENT DATE: 201706
